FAERS Safety Report 4348026-0 (Version None)
Quarter: 2004Q2

REPORT INFORMATION
  Report Type: 
  Country: None (occurrence: None)
  Receive Date: 20040422
  Receipt Date: 20040409
  Transmission Date: 20050107
  Serious: Yes (Other)
  Sender: FDA-Public Use
  Company Number: 2004025029

PATIENT
  Age: 74 Year
  Sex: Female

DRUGS (6)
  1. NORVASC [Suspect]
     Indication: ILL-DEFINED DISORDER
     Dosage: 5 MG (DAILY),ORAL
     Route: 048
  2. IBUDILAST (IBUDILAST) [Concomitant]
  3. PROPIVERINE HYDROCHLORIDE (PROPIVERINE HYDROCHLORIDE) [Concomitant]
  4. ACETYLSALICYLIC ACID SRT [Concomitant]
  5. ZONISAMIDE (ZONISAMIDE) [Concomitant]
  6. MECOBALAMIN (MECOBALAMIN) [Concomitant]

REACTIONS (3)
  - CEREBRAL INFARCTION [None]
  - DYSGEUSIA [None]
  - HYPOAESTHESIA ORAL [None]
